FAERS Safety Report 15643368 (Version 1)
Quarter: 2018Q4

REPORT INFORMATION
  Report Type: Spontaneous
  Country: US (occurrence: US)
  Receive Date: 20181121
  Receipt Date: 20181121
  Transmission Date: 20190205
  Serious: Yes (Death)
  Sender: FDA-Public Use
  Company Number: None

PATIENT
  Age: 89 Year
  Sex: Male
  Weight: 56.25 kg

DRUGS (10)
  1. APIXABAN [Concomitant]
     Active Substance: APIXABAN
  2. TRAZODONE [Concomitant]
     Active Substance: TRAZODONE HYDROCHLORIDE
  3. VITAMIN D [Concomitant]
     Active Substance: CHOLECALCIFEROL
  4. SENNA STOOL SOFTENER [Concomitant]
  5. AMLODIPINE BESYLATE. [Concomitant]
     Active Substance: AMLODIPINE BESYLATE
  6. ATORVASTATIN [Concomitant]
     Active Substance: ATORVASTATIN
  7. MULTIVITAMIN [Concomitant]
     Active Substance: VITAMINS
  8. VELCADE [Suspect]
     Active Substance: BORTEZOMIB
     Indication: PLASMA CELL MYELOMA
     Route: 058
     Dates: start: 20180926, end: 20180926
  9. CALCIUM [Concomitant]
     Active Substance: CALCIUM
  10. SERTRALINE [Concomitant]
     Active Substance: SERTRALINE HYDROCHLORIDE

REACTIONS (6)
  - Ventricular extrasystoles [None]
  - Posterior reversible encephalopathy syndrome [None]
  - Abnormal behaviour [None]
  - Skin discolouration [None]
  - Confusional state [None]
  - Pleural effusion [None]

NARRATIVE: CASE EVENT DATE: 20180926
